FAERS Safety Report 5277358-7 (Version None)
Quarter: 2007Q1

REPORT INFORMATION
  Report Type: 
  Country: None (occurrence: None)
  Receive Date: 20070327
  Receipt Date: 20070305
  Transmission Date: 20070707
  Serious: Yes (Hospitalization)
  Sender: FDA-Public Use
  Company Number: 2007AP00991

PATIENT
  Age: 29118 Day
  Sex: Male

DRUGS (2)
  1. OMEPRAZON [Suspect]
     Indication: DUODENAL ULCER
     Route: 048
     Dates: start: 20061120, end: 20061203
  2. SELBEX [Concomitant]
     Dates: start: 20061120, end: 20061203

REACTIONS (3)
  - HEPATIC FUNCTION ABNORMAL [None]
  - PLATELET COUNT DECREASED [None]
  - PNEUMONIA [None]
